FAERS Safety Report 6703593-4 (Version None)
Quarter: 2010Q2

REPORT INFORMATION
  Report Type: 
  Country: None (occurrence: None)
  Receive Date: 20100430
  Receipt Date: 20100419
  Transmission Date: 20101027
  Serious: No
  Sender: FDA-Public Use
  Company Number: US-B.I. PHARMACEUTICALS,INC./RIDGEFIELD-2010-BP-04583BP

PATIENT
  Sex: Female

DRUGS (8)
  1. SPIRIVA [Suspect]
     Indication: DYSPNOEA
     Dosage: 18 MCG
     Route: 055
     Dates: start: 20100301, end: 20100401
  2. SPIRIVA [Suspect]
     Route: 055
     Dates: start: 20100401
  3. COMBIVENT [Concomitant]
     Indication: DYSPNOEA
     Dates: start: 20000101
  4. AVAPRO [Concomitant]
     Indication: HYPERTENSION
  5. HYDROCHLOROTHIAZIDE [Concomitant]
     Indication: HYPERTENSION
  6. OMEPRAZOLE [Concomitant]
     Indication: GASTRIC DISORDER
  7. ASPIRIN [Concomitant]
     Indication: PROPHYLAXIS
  8. ALLERTEC [Concomitant]
     Indication: HYPERSENSITIVITY

REACTIONS (2)
  - ABDOMINAL RIGIDITY [None]
  - DYSURIA [None]
